FAERS Safety Report 7120503-9 (Version None)
Quarter: 2010Q4

REPORT INFORMATION
  Report Type: 
  Country: None (occurrence: None)
  Receive Date: 20101119
  Receipt Date: 20101119
  Transmission Date: 20110411
  Serious: Yes (Hospitalization)
  Sender: FDA-Public Use
  Company Number: None

PATIENT
  Age: 45 Year
  Sex: Female
  Weight: 81.5 kg

DRUGS (2)
  1. MELOXICAM [Suspect]
     Indication: PAIN
     Dosage: 15 MG EVERY DAY PO
     Route: 048
     Dates: start: 20091026, end: 20100507
  2. KETOROLAC TROMETHAMINE [Suspect]
     Indication: PAIN
     Dosage: 30 MG ONCE IM
     Route: 030
     Dates: start: 20100330, end: 20100330

REACTIONS (3)
  - DUODENAL ULCER [None]
  - GASTRIC HAEMORRHAGE [None]
  - HYPOTENSION [None]
